FAERS Safety Report 26212698 (Version 1)
Quarter: 2025Q4

REPORT INFORMATION
  Report Type: Spontaneous
  Country: US (occurrence: US)
  Receive Date: 20251230
  Receipt Date: 20251230
  Transmission Date: 20260118
  Serious: No
  Sender: ABBVIE
  Company Number: US-ABBVIE-6609005

PATIENT
  Age: 66 Year
  Sex: Female
  Weight: 65.77 kg

DRUGS (3)
  1. ELAHERE [Suspect]
     Active Substance: MIRVETUXIMAB SORAVTANSINE-GYNX
     Indication: Ovarian cancer
     Dosage: FORM STRENGTH: 100 MILLIGRAM? ELAHARE 5 MG/ML INJECTION
     Route: 042
     Dates: start: 20251205, end: 20251205
  2. ELAHERE [Suspect]
     Active Substance: MIRVETUXIMAB SORAVTANSINE-GYNX
     Indication: Ovarian cancer
     Dosage: FORM STRENGTH: 100 MILLIGRAM?ELAHARE 5 MG/ML INJECTION
     Route: 042
     Dates: start: 20250717, end: 20250717
  3. PREDNISONE [Concomitant]
     Active Substance: PREDNISONE
     Indication: Ovarian cancer

REACTIONS (2)
  - Eye disorder [Not Recovered/Not Resolved]
  - Visual impairment [Not Recovered/Not Resolved]

NARRATIVE: CASE EVENT DATE: 20250807
